FAERS Safety Report 9045055 (Version 1)
Quarter: 2013Q1

REPORT INFORMATION
  Report Type: Spontaneous
  Country: US (occurrence: US)
  Receive Date: 20130130
  Receipt Date: 20130130
  Transmission Date: 20140127
  Serious: No
  Sender: FDA-Public Use
  Company Number: US-009507513-1301USA013380

PATIENT
  Age: 76 Year
  Sex: Male

DRUGS (3)
  1. ASMANEX TWISTHALER [Suspect]
     Indication: ALLERGIC BRONCHITIS
     Dosage: 2 PUFFS EVERY MORNING
     Route: 055
     Dates: start: 20130128
  2. METFORMIN [Concomitant]
  3. LOSARTAN POTASSIUM [Concomitant]

REACTIONS (1)
  - Headache [Not Recovered/Not Resolved]
